FAERS Safety Report 22904070 (Version 2)
Quarter: 2023Q4

REPORT INFORMATION
  Report Type: Spontaneous
  Country: US (occurrence: US)
  Receive Date: 20230905
  Receipt Date: 20231107
  Transmission Date: 20240110
  Serious: No
  Sender: FDA-Public Use
  Company Number: US-BRISTOL-MYERS SQUIBB COMPANY-2023-124881

PATIENT
  Age: 70 Year
  Sex: Male
  Weight: 96.16 kg

DRUGS (2)
  1. REVLIMID [Suspect]
     Active Substance: LENALIDOMIDE
     Indication: Plasma cell myeloma
     Route: 048
  2. REVLIMID [Suspect]
     Active Substance: LENALIDOMIDE
     Dosage: FREQUENCY: 3WKSON/1WKOFF
     Route: 048
     Dates: start: 20231001

REACTIONS (4)
  - Fatigue [Not Recovered/Not Resolved]
  - Off label use [Unknown]
  - Ageusia [Not Recovered/Not Resolved]
  - Insomnia [Not Recovered/Not Resolved]
